FAERS Safety Report 15961259 (Version 1)
Quarter: 2019Q1

REPORT INFORMATION
  Report Type: Spontaneous
  Country: US (occurrence: US)
  Receive Date: 20190214
  Receipt Date: 20190214
  Transmission Date: 20190417
  Serious: No
  Sender: FDA-Public Use
  Company Number: US-TEVA-2019-US-999944

PATIENT
  Sex: Female

DRUGS (1)
  1. ACTAVIS CLONAZEPAM [Suspect]
     Active Substance: CLONAZEPAM
     Indication: PANIC ATTACK
     Dates: start: 201806

REACTIONS (4)
  - Panic attack [Unknown]
  - Loss of personal independence in daily activities [Unknown]
  - Product substitution issue [Unknown]
  - Anxiety [Unknown]

NARRATIVE: CASE EVENT DATE: 201806
